FAERS Safety Report 23169161 (Version 1)
Quarter: 2023Q4

REPORT INFORMATION
  Report Type: Spontaneous
  Country: DE (occurrence: DE)
  Receive Date: 20231110
  Receipt Date: 20231110
  Transmission Date: 20240109
  Serious: Yes (Hospitalization, Other)
  Sender: FDA-Public Use
  Company Number: None

PATIENT
  Age: 55 Year
  Sex: Female
  Weight: 76 kg

DRUGS (3)
  1. OLANZAPINE [Suspect]
     Active Substance: OLANZAPINE
     Indication: Mania
     Dosage: 10 MG IN THE MORNING, 5 MG IN THE EVENING, 10 MG AT NIGHT (CLINIC), CURRENTLY 5 MG IN THE MORNING, 1
     Route: 048
     Dates: start: 20220920
  2. OLANZAPINE [Suspect]
     Active Substance: OLANZAPINE
     Indication: Fatigue
  3. OLANZAPINE [Suspect]
     Active Substance: OLANZAPINE
     Indication: Bipolar disorder

REACTIONS (16)
  - Cardiac discomfort [Unknown]
  - Reduced facial expression [Unknown]
  - Developmental hip dysplasia [Unknown]
  - Dysuria [Unknown]
  - Polycystic ovarian syndrome [Unknown]
  - Hirsutism [Unknown]
  - Vitamin B1 deficiency [Unknown]
  - Condition aggravated [Unknown]
  - Ill-defined disorder [Unknown]
  - Urinary hesitation [Unknown]
  - Gait disturbance [Unknown]
  - Alopecia [Unknown]
  - Weight increased [Unknown]
  - Pollakiuria [Unknown]
  - Insulin resistance [Unknown]
  - Nocturia [Unknown]

NARRATIVE: CASE EVENT DATE: 20221020
